FAERS Safety Report 16895046 (Version 1)
Quarter: 2019Q4

REPORT INFORMATION
  Report Type: Spontaneous
  Country: GB (occurrence: GB)
  Receive Date: 20191008
  Receipt Date: 20191008
  Transmission Date: 20200122
  Serious: Yes (Disabling, Other)
  Sender: FDA-Public Use
  Company Number: GB-MYLANLABS-2019M1092699

PATIENT
  Age: 40 Year
  Sex: Female
  Weight: 61 kg

DRUGS (1)
  1. SERTRALINE [Suspect]
     Active Substance: SERTRALINE HYDROCHLORIDE
     Indication: ANXIETY
     Dosage: 150 MILLIGRAM
     Route: 048
     Dates: start: 20140101

REACTIONS (3)
  - Disturbance in sexual arousal [Not Recovered/Not Resolved]
  - Loss of libido [Not Recovered/Not Resolved]
  - Female orgasmic disorder [Not Recovered/Not Resolved]

NARRATIVE: CASE EVENT DATE: 20140430
